FAERS Safety Report 26010925 (Version 1)
Quarter: 2025Q4

REPORT INFORMATION
  Report Type: Spontaneous
  Country: US (occurrence: None)
  Receive Date: 20251106
  Receipt Date: 20251106
  Transmission Date: 20260117
  Serious: Yes (Hospitalization)
  Sender: FDA-CTU
  Company Number: None

PATIENT
  Age: 68 Year
  Sex: Male

DRUGS (11)
  1. SILDENAFIL [Suspect]
     Active Substance: SILDENAFIL
     Indication: Pulmonary arterial hypertension
     Route: 048
     Dates: start: 20190124
  2. ALBUTEROL [Concomitant]
     Active Substance: ALBUTEROL
  3. ATORVASTATIN [Concomitant]
     Active Substance: ATORVASTATIN
  4. NM-6603 [Concomitant]
     Active Substance: NM-6603
  5. BIOTIN [Concomitant]
     Active Substance: BIOTIN
  6. CHOLECALCIFEROL [Concomitant]
     Active Substance: CHOLECALCIFEROL
  7. DOVONEX [Concomitant]
     Active Substance: CALCIPOTRIENE
  8. LORATADINE [Concomitant]
     Active Substance: LORATADINE
  9. METFORMIN [Concomitant]
     Active Substance: METFORMIN HYDROCHLORIDE
  10. OPSUMIT [Concomitant]
     Active Substance: MACITENTAN
  11. POTASSIUM CHLORIDE [Concomitant]
     Active Substance: POTASSIUM CHLORIDE

REACTIONS (4)
  - Cardiovascular disorder [None]
  - Pneumonia viral [None]
  - Sepsis [None]
  - Hypervolaemia [None]

NARRATIVE: CASE EVENT DATE: 20251001
